FAERS Safety Report 8424636-6 (Version None)
Quarter: 2012Q2

REPORT INFORMATION
  Report Type: 
  Country: None (occurrence: None)
  Receive Date: 20120611
  Receipt Date: 20120606
  Transmission Date: 20120825
  Serious: Yes (Hospitalization)
  Sender: FDA-Public Use
  Company Number: US-BIOGENIDEC-2011BI047995

PATIENT
  Age: 61 Year
  Sex: Male

DRUGS (3)
  1. COLESTID [Concomitant]
     Indication: CROHN'S DISEASE
  2. TYSABRI [Suspect]
     Indication: MULTIPLE SCLEROSIS
     Route: 042
     Dates: start: 20070115, end: 20111021
  3. LOMOTIL [Concomitant]
     Indication: CROHN'S DISEASE

REACTIONS (11)
  - OEDEMA PERIPHERAL [None]
  - CLOSTRIDIUM TEST POSITIVE [None]
  - WOUND [None]
  - MULTIPLE SCLEROSIS RELAPSE [None]
  - SKIN ULCER [None]
  - CROHN'S DISEASE [None]
  - LOSS OF CONTROL OF LEGS [None]
  - STAPHYLOCOCCAL SKIN INFECTION [None]
  - THROMBOSIS [None]
  - OPPORTUNISTIC INFECTION [None]
  - SPINAL CORD DISORDER [None]
